FAERS Safety Report 5047409-3 (Version None)
Quarter: 2006Q3

REPORT INFORMATION
  Report Type: 
  Country: None (occurrence: None)
  Receive Date: 20060703
  Receipt Date: 20060621
  Transmission Date: 20061208
  Serious: Yes (Disabling)
  Sender: FDA-Public Use
  Company Number: 25179

PATIENT
  Age: 44 Year
  Sex: Male

DRUGS (3)
  1. NICOTINIC ACID [Suspect]
     Indication: DYSLIPIDAEMIA
     Dosage: 6 G QD PO
     Route: 048
     Dates: start: 19971101, end: 19980701
  2. ATORVASTATIN CALCIUM [Concomitant]
  3. FENOFIBRATE [Concomitant]

REACTIONS (1)
  - DIABETES MELLITUS NON-INSULIN-DEPENDENT [None]
